FAERS Safety Report 21808122 (Version 2)
Quarter: 2023Q1

REPORT INFORMATION
  Report Type: Spontaneous
  Country: US (occurrence: US)
  Receive Date: 20230103
  Receipt Date: 20230208
  Transmission Date: 20230418
  Serious: Yes (Other)
  Sender: FDA-Public Use
  Company Number: US-SA-SAC20230102000610

PATIENT
  Age: 43 Year
  Sex: Female

DRUGS (1)
  1. AUBAGIO [Suspect]
     Active Substance: TERIFLUNOMIDE
     Indication: Multiple sclerosis
     Dosage: 14 MG, QD
     Route: 048
     Dates: start: 20190820

REACTIONS (8)
  - Multiple sclerosis [Unknown]
  - Tremor [Unknown]
  - Movement disorder [Unknown]
  - Fall [Unknown]
  - Fine motor skill dysfunction [Unknown]
  - Asthenia [Unknown]
  - Memory impairment [Unknown]
  - Cognitive disorder [Unknown]

NARRATIVE: CASE EVENT DATE: 20221212
